FAERS Safety Report 10942749 (Version 2)
Quarter: 2015Q2

REPORT INFORMATION
  Report Type: Spontaneous
  Country: US (occurrence: US)
  Receive Date: 20150322
  Receipt Date: 20150524
  Transmission Date: 20150821
  Serious: No
  Sender: FDA-Public Use
  Company Number: US-JNJFOC-20140307678

PATIENT
  Age: 73 Year
  Sex: Male
  Weight: 108.86 kg

DRUGS (1)
  1. INVOKANA [Suspect]
     Active Substance: CANAGLIFLOZIN
     Indication: DIABETES MELLITUS
     Route: 048
     Dates: start: 201402

REACTIONS (2)
  - Penile discharge [Recovering/Resolving]
  - Penile erythema [Recovering/Resolving]

NARRATIVE: CASE EVENT DATE: 201402
